FAERS Safety Report 6377483-3 (Version None)
Quarter: 2009Q3

REPORT INFORMATION
  Report Type: 
  Country: None (occurrence: None)
  Receive Date: 20090925
  Receipt Date: 20090921
  Transmission Date: 20100115
  Serious: Yes (Hospitalization)
  Sender: FDA-Public Use
  Company Number: US-GENENTECH-290405

PATIENT
  Sex: Male
  Weight: 57.143 kg

DRUGS (16)
  1. BEVACIZUMAB [Suspect]
     Indication: NON-SMALL CELL LUNG CANCER
     Dosage: 10 MG/KG, Q2W
     Route: 042
     Dates: start: 20090318, end: 20090827
  2. COLACE [Concomitant]
     Indication: CONSTIPATION
     Dosage: UNK
     Dates: start: 20090101
  3. VICODIN [Concomitant]
     Indication: PAIN
     Dosage: UNK
     Dates: start: 20090311
  4. FLOMAX [Concomitant]
     Indication: URINARY RETENTION
     Dosage: UNK
     Dates: start: 20090318
  5. COMPAZINE [Concomitant]
     Indication: NAUSEA
     Dosage: UNK
     Dates: start: 20090318
  6. COMPAZINE [Concomitant]
     Indication: VOMITING
  7. ATIVAN [Concomitant]
     Indication: NAUSEA
     Dosage: UNK
     Dates: start: 20090318
  8. ATIVAN [Concomitant]
     Indication: VOMITING
  9. PROTONIX [Concomitant]
     Indication: ABDOMINAL PAIN
     Dosage: UNK
     Dates: start: 20090318
  10. PROTONIX [Concomitant]
     Indication: PROPHYLAXIS
  11. AREDIA [Concomitant]
     Indication: METASTASES TO BONE
     Dosage: UNK
     Dates: start: 20090318
  12. NORVASC [Concomitant]
     Indication: HYPERTENSION
     Dosage: UNK
     Dates: start: 20090513, end: 20090822
  13. SENNA [Concomitant]
     Indication: CONSTIPATION
     Dosage: UNK
     Dates: start: 20090706
  14. MIRALAX [Concomitant]
     Indication: CONSTIPATION
     Dosage: UNK
     Dates: start: 20090706
  15. MAG CITRATE [Concomitant]
     Indication: CONSTIPATION
     Dosage: UNK
     Dates: start: 20090706
  16. AUGMENTIN [Concomitant]
     Indication: INFECTION
     Dosage: UNK
     Dates: start: 20090827, end: 20090907

REACTIONS (2)
  - CONSTIPATION [None]
  - LUNG ABSCESS [None]
